FAERS Safety Report 5729799-9 (Version None)
Quarter: 2008Q2

REPORT INFORMATION
  Report Type: 
  Country: None (occurrence: None)
  Receive Date: 20080501
  Receipt Date: 20080418
  Transmission Date: 20081010
  Serious: Yes (Other)
  Sender: FDA-Public Use
  Company Number: FR-1165881

PATIENT
  Sex: Female

DRUGS (6)
  1. CIPROFLOXACIN HYDROCHLORIDE [Suspect]
     Dosage: 2 GTT QID
     Dates: start: 20080401, end: 20080403
  2. MACUGEN [Concomitant]
  3. SOTALEX (SOTALOL HYDROCHOLORIDE) [Concomitant]
  4. AMLODIPINE BESYLATE [Concomitant]
  5. HYZAAR [Concomitant]
  6. ZOLPIDEM TARTRATE [Concomitant]

REACTIONS (7)
  - ACUTE CORONARY SYNDROME [None]
  - ANAPHYLACTIC SHOCK [None]
  - ANGIOEDEMA [None]
  - CORONARY ARTERY OCCLUSION [None]
  - MACROGLOSSIA [None]
  - PALATAL OEDEMA [None]
  - TACHYPNOEA [None]
